FAERS Safety Report 5134291-9 (Version None)
Quarter: 2006Q4

REPORT INFORMATION
  Report Type: 
  Country: None (occurrence: None)
  Receive Date: 20060831
  Receipt Date: 20060705
  Transmission Date: 20070319
  Serious: No
  Sender: FDA-Public Use
  Company Number: 2006-BP-07669BP

PATIENT
  Sex: Male

DRUGS (2)
  1. SPIRIVA [Suspect]
     Indication: BRONCHITIS CHRONIC
     Dosage: SEE IMAGE
     Dates: start: 20060501, end: 20060601
  2. SPIRIVA [Suspect]
     Indication: BRONCHITIS CHRONIC
     Dosage: SEE IMAGE
     Dates: start: 20060601, end: 20060703

REACTIONS (5)
  - APHONIA [None]
  - BURNING SENSATION [None]
  - PHARYNGITIS [None]
  - PHARYNGOLARYNGEAL PAIN [None]
  - THROAT IRRITATION [None]
